FAERS Safety Report 5192527-2 (Version None)
Quarter: 2006Q4

REPORT INFORMATION
  Report Type: 
  Country: None (occurrence: None)
  Receive Date: 20061220
  Receipt Date: 20061205
  Transmission Date: 20070319
  Serious: Yes (Other)
  Sender: FDA-Public Use
  Company Number: 2006S1011650

PATIENT
  Age: 7 Year
  Sex: Female

DRUGS (6)
  1. MERCAPTAMINE BITARTRATE [Suspect]
     Indication: CYSTINOSIS
     Dosage: 50 MG;QID;PO
     Route: 048
     Dates: start: 20060901, end: 20061122
  2. EPOGEN [Concomitant]
  3. CALCIUM CARBONATE [Concomitant]
  4. POTASSIUM CHLORIDE [Concomitant]
  5. SPIRONOLACTONE [Concomitant]
  6. IRON [Concomitant]

REACTIONS (3)
  - ABDOMINAL PAIN [None]
  - BLOOD CREATININE INCREASED [None]
  - LETHARGY [None]
